FAERS Safety Report 25715112 (Version 1)
Quarter: 2025Q3

REPORT INFORMATION
  Report Type: Spontaneous
  Country: US (occurrence: None)
  Receive Date: 20250821
  Receipt Date: 20250821
  Transmission Date: 20251021
  Serious: Yes (Hospitalization)
  Sender: FDA-CTU
  Company Number: None

PATIENT
  Sex: Female

DRUGS (6)
  1. GAMMAGARD LIQUID [Suspect]
     Active Substance: HUMAN IMMUNOGLOBULIN G
     Dosage: OTHER STRENGTH : 30/300 GM/M;?FREQUENCY : MONTHLY;?
     Route: 042
     Dates: start: 20250523
  2. GAMMAGARD LIQUID [Suspect]
     Active Substance: HUMAN IMMUNOGLOBULIN G
     Route: 042
     Dates: start: 20250523
  3. ACETAMINOPHEN [Concomitant]
     Active Substance: ACETAMINOPHEN
  4. NORMAL SALINE FLUSH (5ML) [Concomitant]
  5. DIPHENHYDRAMINE (ALLERGY ) [Concomitant]
  6. EPINEPHRINE AUTO-INJ [Concomitant]

REACTIONS (1)
  - Urinary tract infection [None]
